FAERS Safety Report 7649325-7 (Version None)
Quarter: 2011Q3

REPORT INFORMATION
  Report Type: 
  Country: None (occurrence: None)
  Receive Date: 20110802
  Receipt Date: 20110722
  Transmission Date: 20111222
  Serious: Yes (Other)
  Sender: FDA-Public Use
  Company Number: JP-PFIZER INC-2011174857

PATIENT
  Age: 45 Year
  Sex: Male

DRUGS (2)
  1. LEXOTAN [Concomitant]
  2. LIPITOR [Suspect]
     Dosage: 10 MG, 1X/DAY
     Route: 048

REACTIONS (4)
  - PYREXIA [None]
  - RHABDOMYOLYSIS [None]
  - HYPOAESTHESIA [None]
  - MYALGIA [None]
